FAERS Safety Report 6321340-5 (Version None)
Quarter: 2009Q3

REPORT INFORMATION
  Report Type: 
  Country: None (occurrence: None)
  Receive Date: 20090822
  Receipt Date: 20090309
  Transmission Date: 20100115
  Serious: No
  Sender: FDA-Public Use
  Company Number: US-ABBOTT-09P-163-0498100-00

PATIENT
  Sex: Female

DRUGS (8)
  1. NIASPAN [Suspect]
     Indication: HYPERCHOLESTEROLAEMIA
     Dosage: 1 IN 1 DAY TAKEN AT NIGHT
     Route: 048
  2. COUMADIN [Concomitant]
     Indication: DRUG USE FOR UNKNOWN INDICATION
  3. FORTAMET [Concomitant]
     Indication: DRUG USE FOR UNKNOWN INDICATION
  4. DIOVAN [Concomitant]
     Indication: DRUG USE FOR UNKNOWN INDICATION
  5. CARTIA XT [Concomitant]
     Indication: DRUG USE FOR UNKNOWN INDICATION
  6. LEVOXYL [Concomitant]
     Indication: DRUG USE FOR UNKNOWN INDICATION
  7. HYDROCHLOROTHIAZIDE [Concomitant]
     Indication: DRUG USE FOR UNKNOWN INDICATION
  8. ADVIL [Concomitant]
     Indication: DRUG USE FOR UNKNOWN INDICATION

REACTIONS (3)
  - BURNING SENSATION [None]
  - PALPITATIONS [None]
  - PRURITUS [None]
